FAERS Safety Report 7002346-X (Version None)
Quarter: 2010Q3

REPORT INFORMATION
  Report Type: 
  Country: None (occurrence: None)
  Receive Date: 20100920
  Receipt Date: 20070615
  Transmission Date: 20110219
  Serious: Yes (Hospitalization, Other)
  Sender: FDA-Public Use
  Company Number: US-ASTRAZENECA-2006UW27941

PATIENT
  Age: 503 Month
  Sex: Female
  Weight: 180.1 kg

DRUGS (19)
  1. SEROQUEL [Suspect]
     Indication: DEPRESSION
     Route: 048
     Dates: start: 20000101
  2. SEROQUEL [Suspect]
     Indication: SCHIZOPHRENIA
     Route: 048
     Dates: start: 20000101
  3. SEROQUEL [Suspect]
     Dosage: STRENGTH: 25 MG AND 200 MG DOSE: 50 MG - 600 MG
     Route: 048
     Dates: start: 20000620
  4. SEROQUEL [Suspect]
     Dosage: STRENGTH: 25 MG AND 200 MG DOSE: 50 MG - 600 MG
     Route: 048
     Dates: start: 20000620
  5. RISPERDAL [Concomitant]
  6. RISPERDAL [Concomitant]
     Dosage: STRENGTH: 1 MG AND 2 MG. DOSE: 2 MG - 4 MG
     Dates: start: 20001110
  7. SERZONE [Concomitant]
  8. ZOLOFT [Concomitant]
     Dosage: STRENGTH: 100 MG, 150 MG. DOSE: 100 MG TO 150 MG DAILY
     Route: 048
     Dates: start: 19990620
  9. NORVASC [Concomitant]
     Route: 048
     Dates: start: 20020708
  10. CELEBREX [Concomitant]
     Route: 048
     Dates: start: 20020708
  11. ZESTRIL [Concomitant]
     Route: 048
     Dates: start: 20020708
  12. NEURONTIN [Concomitant]
     Dosage: STRENGTH: 400 MG, 600 MG. DOSE: 1200 MG - 1800 MG
     Route: 048
     Dates: start: 20020620
  13. LASIX [Concomitant]
     Dates: start: 20020815
  14. EFFEXOR XR [Concomitant]
     Dates: start: 20001110
  15. TRAZODONE HCL [Concomitant]
     Dates: start: 20001110
  16. HYDROCHLOROTHIAZIDE [Concomitant]
     Indication: HYPERTENSION
     Dates: start: 20001110
  17. WELLBUTRIN SR [Concomitant]
     Dates: start: 20001110
  18. PEPCID [Concomitant]
     Dates: start: 20001110
  19. CIMETIDINE [Concomitant]
     Indication: GASTROOESOPHAGEAL REFLUX DISEASE
     Dates: start: 20001110

REACTIONS (5)
  - DIABETES MELLITUS [None]
  - DIABETES MELLITUS INADEQUATE CONTROL [None]
  - DIABETIC KETOACIDOSIS [None]
  - PANCREATITIS [None]
  - TYPE 2 DIABETES MELLITUS [None]
